FAERS Safety Report 10836034 (Version 2)
Quarter: 2015Q1

REPORT INFORMATION
  Report Type: Report from Study
  Country: US (occurrence: US)
  Receive Date: 20150219
  Receipt Date: 20150303
  Transmission Date: 20150721
  Serious: Yes (Hospitalization)
  Sender: FDA-Public Use
  Company Number: US-ACTELION-A-NJ2015-112875

PATIENT
  Age: 2 Year
  Sex: Female

DRUGS (8)
  1. BUMETANIDE. [Concomitant]
     Active Substance: BUMETANIDE
     Dosage: 1.8 MG, BID
     Route: 048
     Dates: start: 2013
  2. CHLOROTHIAZIDE. [Concomitant]
     Active Substance: CHLOROTHIAZIDE
     Dosage: 180 MG, BID
     Route: 048
     Dates: start: 2015
  3. SPIRONOLACTONE. [Concomitant]
     Active Substance: SPIRONOLACTONE
     Dosage: 20 MG, BID
     Route: 048
     Dates: start: 2013
  4. TRACLEER [Suspect]
     Active Substance: BOSENTAN\BOSENTAN MONOHYDRATE
     Indication: PULMONARY HYPERTENSION
     Dosage: 19 MG, BID
     Route: 048
     Dates: start: 201304
  5. SILDENAFIL. [Concomitant]
     Active Substance: SILDENAFIL
     Dosage: 11.25 MG, Q8HRS
     Route: 048
     Dates: start: 2013
  6. BUDESONIDE. [Concomitant]
     Active Substance: BUDESONIDE
     Dosage: 2 ML, BID
     Route: 055
     Dates: start: 2013
  7. POTASSIUM CHLORIDE. [Concomitant]
     Active Substance: POTASSIUM CHLORIDE
     Dosage: 16 MEQ, Q6HRS
     Route: 048
     Dates: start: 2013
  8. ALBUTEROL. [Concomitant]
     Active Substance: ALBUTEROL
     Dosage: 2 PUFFS, PRN
     Dates: start: 2013

REACTIONS (8)
  - Pulmonary oedema [Unknown]
  - Lung consolidation [Recovering/Resolving]
  - Hypoxia [Unknown]
  - Oedema peripheral [Unknown]
  - Fluid retention [Unknown]
  - Pleural effusion [Recovered/Resolved]
  - Pneumonia [Unknown]
  - Cough [Unknown]

NARRATIVE: CASE EVENT DATE: 201502
